FAERS Safety Report 8482607-8 (Version None)
Quarter: 2012Q3

REPORT INFORMATION
  Report Type: 
  Country: None (occurrence: None)
  Receive Date: 20120702
  Receipt Date: 20120627
  Transmission Date: 20120928
  Serious: Yes (Hospitalization)
  Sender: FDA-Public Use
  Company Number: FR-MERCK-1203USA03459

PATIENT
  Age: 86 Year
  Sex: Male

DRUGS (8)
  1. FUROSEMIDE [Concomitant]
     Indication: HYPERTENSION
     Route: 048
     Dates: end: 20120303
  2. ZOCOR [Suspect]
     Route: 048
     Dates: start: 20110201, end: 20120302
  3. RAMIPRIL [Concomitant]
     Indication: HYPERTENSION
     Route: 048
  4. LANTUS [Concomitant]
     Indication: TYPE 2 DIABETES MELLITUS
     Route: 058
  5. KARDEGIC [Concomitant]
     Route: 048
  6. OXEOL [Suspect]
     Indication: CHRONIC OBSTRUCTIVE PULMONARY DISEASE
     Route: 048
     Dates: start: 20120101
  7. ALFUZOSIN HCL [Concomitant]
     Route: 048
  8. MIRTAZAPINE [Concomitant]
     Route: 048
     Dates: start: 20110801

REACTIONS (2)
  - RHABDOMYOLYSIS [None]
  - DRUG INTERACTION [None]
